FAERS Safety Report 12340340 (Version 2)
Quarter: 2016Q2

REPORT INFORMATION
  Report Type: Report from Study
  Country: BR (occurrence: BR)
  Receive Date: 20160506
  Receipt Date: 20160518
  Transmission Date: 20160815
  Serious: Yes (Hospitalization, Other)
  Sender: FDA-Public Use
  Company Number: PHHY2016BR061341

PATIENT
  Age: 50 Year
  Sex: Female
  Weight: 60 kg

DRUGS (5)
  1. DIOVAN [Suspect]
     Active Substance: VALSARTAN
     Dosage: 2 DF (160 MG), QD
     Route: 048
  2. INDAPEN//INDAPAMIDE [Concomitant]
     Active Substance: INDAPAMIDE
     Indication: CARDIAC DISORDER
     Dosage: 1 DF, QD
     Route: 048
  3. ATENSINA [Concomitant]
     Active Substance: CLONIDINE
     Indication: CARDIAC DISORDER
     Dosage: 1 DF, QD
     Route: 048
  4. VERAPAMIL HYDROCHLORIDE. [Concomitant]
     Active Substance: VERAPAMIL HYDROCHLORIDE
     Indication: CARDIAC DISORDER
     Dosage: 1 DF, QD
     Route: 048
  5. DIOVAN [Suspect]
     Active Substance: VALSARTAN
     Indication: HYPERTENSION
     Dosage: 1 DF (80 MG), QD
     Route: 048

REACTIONS (7)
  - Infarction [Recovered/Resolved]
  - Thyroiditis acute [Recovered/Resolved]
  - Angina pectoris [Recovered/Resolved]
  - Cardiac disorder [Unknown]
  - Thrombosis [Unknown]
  - Femoral nerve injury [Recovered/Resolved]
  - Frontotemporal dementia [Recovered/Resolved]

NARRATIVE: CASE EVENT DATE: 201504
